FAERS Safety Report 16752983 (Version 2)
Quarter: 2019Q4

REPORT INFORMATION
  Report Type: Spontaneous
  Country: US (occurrence: US)
  Receive Date: 20190829
  Receipt Date: 20191021
  Transmission Date: 20200122
  Serious: No
  Sender: FDA-Public Use
  Company Number: US-BIOGEN-2019BI00765681

PATIENT
  Sex: Female

DRUGS (2)
  1. TECFIDERA [Suspect]
     Active Substance: DIMETHYL FUMARATE
     Route: 048
     Dates: start: 20190708, end: 20190809
  2. TECFIDERA [Suspect]
     Active Substance: DIMETHYL FUMARATE
     Indication: MULTIPLE SCLEROSIS
     Route: 048
     Dates: start: 20190624

REACTIONS (11)
  - Back pain [Unknown]
  - Pollakiuria [Unknown]
  - Sexual dysfunction [Unknown]
  - Nausea [Unknown]
  - Drug ineffective [Unknown]
  - Snoring [Unknown]
  - Vomiting [Unknown]
  - Flushing [Unknown]
  - Abdominal pain upper [Unknown]
  - Urticaria [Unknown]
  - Hypertension [Unknown]
